FAERS Safety Report 25213813 (Version 1)
Quarter: 2025Q2

REPORT INFORMATION
  Report Type: Spontaneous
  Country: US (occurrence: US)
  Receive Date: 20250418
  Receipt Date: 20250418
  Transmission Date: 20250716
  Serious: Yes (Hospitalization)
  Sender: MYLAN
  Company Number: US-MYLANLABS-2025M1032982

PATIENT
  Age: 14 Year
  Sex: Female

DRUGS (8)
  1. METHYLPHENIDATE [Suspect]
     Active Substance: METHYLPHENIDATE
     Indication: Major depression
  2. FLUOXETINE [Suspect]
     Active Substance: FLUOXETINE HYDROCHLORIDE
     Indication: Major depression
     Dosage: 60 MILLIGRAM, QD
  3. BUPROPION [Suspect]
     Active Substance: BUPROPION
     Indication: Major depression
  4. QUETIAPINE [Suspect]
     Active Substance: QUETIAPINE
     Indication: Major depression
  5. QUETIAPINE [Suspect]
     Active Substance: QUETIAPINE
     Dosage: 700 MILLIGRAM, QD (PILLS; EVERY NIGHT)
  6. QUETIAPINE [Suspect]
     Active Substance: QUETIAPINE
  7. CLONAZEPAM [Concomitant]
     Active Substance: CLONAZEPAM
     Indication: Anxiety
     Dosage: 0.5 MILLIGRAM, BID
  8. ARIPIPRAZOLE [Concomitant]
     Active Substance: ARIPIPRAZOLE
     Indication: Major depression
     Dosage: 20 MILLIGRAM, QD

REACTIONS (10)
  - Tachycardia [Unknown]
  - Blood sodium increased [Unknown]
  - Protein total increased [Unknown]
  - Blood magnesium increased [Unknown]
  - High density lipoprotein increased [Unknown]
  - Protein urine present [Unknown]
  - Intentional overdose [Unknown]
  - Suicide attempt [Unknown]
  - Dyspepsia [Unknown]
  - Off label use [Unknown]
